FAERS Safety Report 20838331 (Version 16)
Quarter: 2022Q4

REPORT INFORMATION
  Report Type: Report from Study
  Country: GB (occurrence: None)
  Receive Date: 20220517
  Receipt Date: 20221109
  Transmission Date: 20230113
  Serious: Yes (Hospitalization)
  Sender: FDA-Public Use
  Company Number: GB-Eisai Medical Research-EC-2022-114741

PATIENT
  Age: 65 Year
  Sex: Female
  Weight: 49.2 kg

DRUGS (14)
  1. LENVATINIB [Suspect]
     Active Substance: LENVATINIB
     Indication: Oesophageal cancer metastatic
     Route: 048
     Dates: start: 20220429
  2. PEMBROLIZUMAB [Suspect]
     Active Substance: PEMBROLIZUMAB
     Indication: Oesophageal cancer metastatic
     Route: 041
     Dates: start: 20220429, end: 20220429
  3. FLUOROURACIL [Suspect]
     Active Substance: FLUOROURACIL
     Indication: Oesophageal cancer metastatic
     Dosage: DOSE UNKNOWN
     Route: 040
     Dates: start: 20220429, end: 20220429
  4. FLUOROURACIL [Suspect]
     Active Substance: FLUOROURACIL
     Dosage: DOSE UNKNOWN
     Route: 041
     Dates: start: 20220429, end: 20220501
  5. OXALIPLATIN [Suspect]
     Active Substance: OXALIPLATIN
     Indication: Oesophageal cancer metastatic
     Dosage: DOSE UNKNOWN
     Route: 041
     Dates: start: 20220429, end: 20220429
  6. LEUCOVORIN [Suspect]
     Active Substance: LEUCOVORIN
     Indication: Oesophageal cancer metastatic
     Route: 041
     Dates: start: 20220429, end: 20220429
  7. LANSOPRAZOLE [Concomitant]
     Active Substance: LANSOPRAZOLE
     Route: 048
     Dates: start: 20181201
  8. ZOPICLONE [Concomitant]
     Active Substance: ZOPICLONE
     Route: 048
     Dates: start: 20220422, end: 20220531
  9. ACETAMINOPHEN [Concomitant]
     Active Substance: ACETAMINOPHEN
     Route: 048
     Dates: start: 20220421
  10. AMLODIPINE [Concomitant]
     Active Substance: AMLODIPINE BESYLATE
     Route: 048
     Dates: start: 20220421, end: 20220531
  11. ORAMORPH SR SUSTAINED RELEASE [Concomitant]
     Active Substance: MORPHINE SULFATE
     Dates: start: 20220421, end: 20220531
  12. IBUPROFEN [Concomitant]
     Active Substance: IBUPROFEN
     Dates: start: 20220314, end: 20220420
  13. CODEINE [Concomitant]
     Active Substance: CODEINE
     Dates: start: 20220421, end: 20220421
  14. DEXAMETHASONE [Concomitant]
     Active Substance: DEXAMETHASONE
     Dates: start: 20220421, end: 20220421

REACTIONS (2)
  - Neutropenic sepsis [Recovered/Resolved]
  - Nausea [Not Recovered/Not Resolved]

NARRATIVE: CASE EVENT DATE: 20220501
